FAERS Safety Report 7990512-6 (Version None)
Quarter: 2011Q4

REPORT INFORMATION
  Report Type: 
  Country: None (occurrence: None)
  Receive Date: 20111219
  Receipt Date: 20110225
  Transmission Date: 20120403
  Serious: No
  Sender: FDA-Public Use
  Company Number: US-ASTRAZENECA-2008UW04168

PATIENT
  Age: 68 Year
  Sex: Female
  Weight: 72.6 kg

DRUGS (12)
  1. AVAPRO [Concomitant]
  2. CRESTOR [Suspect]
     Indication: HYPERCHOLESTEROLAEMIA
     Route: 048
     Dates: start: 20060301
  3. LEVOXYL [Concomitant]
  4. CALCIUM W/MAGNESIUM + VITAMIN D [Concomitant]
  5. MOTRIN [Concomitant]
  6. ASPIRIN [Concomitant]
  7. ZANTAC [Concomitant]
  8. DETROL LA [Concomitant]
  9. AMILODIPINE [Concomitant]
  10. NASONEX [Concomitant]
  11. ACETAMINOPHEN [Concomitant]
  12. THYROID SUPPLEMENT [Concomitant]

REACTIONS (2)
  - ALOPECIA [None]
  - AMNESIA [None]
